FAERS Safety Report 8434639-3 (Version None)
Quarter: 2012Q2

REPORT INFORMATION
  Report Type: 
  Country: None (occurrence: None)
  Receive Date: 20120614
  Receipt Date: 20120604
  Transmission Date: 20120825
  Serious: Yes (Hospitalization)
  Sender: FDA-Public Use
  Company Number: US-BRISTOL-MYERS SQUIBB COMPANY-16586604

PATIENT
  Age: 58 Year
  Sex: Male
  Weight: 64 kg

DRUGS (2)
  1. CISPLATIN [Suspect]
     Indication: OESOPHAGEAL SQUAMOUS CELL CARCINOMA
     Dosage: LAST ADMIN: 30APR12. 25MG/M2.1 COURSE; 14-MAY-2012: DAY 15
     Dates: start: 20120430
  2. TAXOL [Suspect]
     Indication: OESOPHAGEAL SQUAMOUS CELL CARCINOMA
     Dosage: LAST ADMIN: 30APR12. 50MG/M2. 1 COURSE; 14-MAY-2012: DAY 15
     Dates: start: 20120430

REACTIONS (4)
  - VOMITING [None]
  - LUNG INFECTION [None]
  - SYNCOPE [None]
  - FEBRILE NEUTROPENIA [None]
